FAERS Safety Report 4284776-2 (Version None)
Quarter: 2004Q1

REPORT INFORMATION
  Report Type: 
  Country: None (occurrence: None)
  Receive Date: 20040203
  Receipt Date: 20040120
  Transmission Date: 20041129
  Serious: Yes (Hospitalization)
  Sender: FDA-Public Use
  Company Number: 04-01-0158

PATIENT
  Sex: Female

DRUGS (2)
  1. FLUOXETINE [Suspect]
     Indication: DEPRESSION
     Dosage: 20MG ORAL
     Route: 048
     Dates: start: 20030313, end: 20031110
  2. AMOXICILLIN [Concomitant]

REACTIONS (2)
  - BRADYCARDIA NEONATAL [None]
  - MATERNAL DRUGS AFFECTING FOETUS [None]
